FAERS Safety Report 8567944-0 (Version None)
Quarter: 2012Q3

REPORT INFORMATION
  Report Type: 
  Country: None (occurrence: None)
  Receive Date: 20120803
  Receipt Date: 20110804
  Transmission Date: 20120928
  Serious: No
  Sender: FDA-Public Use
  Company Number: US-ABBOTT-11P-163-0844531-00

PATIENT
  Sex: Female
  Weight: 53.572 kg

DRUGS (4)
  1. NIASPAN [Suspect]
     Indication: BLOOD CHOLESTEROL INCREASED
     Dates: start: 20110101, end: 20110803
  2. FLUTICASONE PROPIONATE [Concomitant]
     Indication: ASTHMA
  3. TRAMADOL HCL [Concomitant]
     Indication: PAIN
  4. SINGULAIR [Concomitant]
     Indication: ASTHMA

REACTIONS (6)
  - GLYCOSYLATED HAEMOGLOBIN INCREASED [None]
  - PARAESTHESIA [None]
  - FLUSHING [None]
  - PRURITUS [None]
  - DIZZINESS [None]
  - DIABETES MELLITUS [None]
